FAERS Safety Report 26128387 (Version 1)
Quarter: 2025Q4

REPORT INFORMATION
  Report Type: Spontaneous
  Country: US (occurrence: US)
  Receive Date: 20251207
  Receipt Date: 20251207
  Transmission Date: 20260117
  Serious: Yes (Life-Threatening, Hospitalization)
  Sender: VISTAPHARM
  Company Number: US-VISTAPHARM-2025-US-052555

PATIENT
  Age: 2 Year
  Sex: Male

DRUGS (1)
  1. METHADONE HYDROCHLORIDE [Suspect]
     Active Substance: METHADONE HYDROCHLORIDE
     Indication: Product used for unknown indication
     Route: 048

REACTIONS (4)
  - Neurotoxicity [Recovered/Resolved]
  - Brain oedema [Recovered/Resolved]
  - Brain herniation [Recovered/Resolved]
  - Accidental exposure to product [Recovered/Resolved]
